FAERS Safety Report 16277301 (Version 1)
Quarter: 2019Q2

REPORT INFORMATION
  Report Type: Spontaneous
  Country: GB (occurrence: GB)
  Receive Date: 20190506
  Receipt Date: 20190506
  Transmission Date: 20190711
  Serious: Yes (Other)
  Sender: FDA-Public Use
  Company Number: GB-TEVA-2019-GB-1045506

PATIENT
  Age: 32 Year
  Sex: Male

DRUGS (1)
  1. AMOXICILLIN W/CLAVULANIC ACID [Suspect]
     Active Substance: AMOXICILLIN\CLAVULANIC ACID
     Dosage: 250MG/125MG
     Dates: start: 20190401

REACTIONS (1)
  - Cyanosis [Recovered/Resolved]

NARRATIVE: CASE EVENT DATE: 20190401
